FAERS Safety Report 25348728 (Version 1)
Quarter: 2025Q2

REPORT INFORMATION
  Report Type: Spontaneous
  Country: CN (occurrence: CN)
  Receive Date: 20250522
  Receipt Date: 20250522
  Transmission Date: 20250717
  Serious: Yes (Hospitalization, Other)
  Sender: NOVARTIS
  Company Number: CN-002147023-NVSC2025CN080194

PATIENT
  Age: 46 Year
  Sex: Male
  Weight: 50 kg

DRUGS (3)
  1. TEGRETOL [Suspect]
     Active Substance: CARBAMAZEPINE
     Indication: Restless legs syndrome
     Dosage: 0.200 G, QD
     Route: 048
     Dates: start: 20250412, end: 20250505
  2. TEGRETOL [Suspect]
     Active Substance: CARBAMAZEPINE
     Indication: Disorganised speech
  3. IVABRADINE HYDROCHLORIDE [Suspect]
     Active Substance: IVABRADINE HYDROCHLORIDE
     Indication: Cardiac disorder
     Dosage: 5.000 MG, QD
     Route: 048
     Dates: start: 20250412, end: 20250505

REACTIONS (7)
  - Atrioventricular block [Recovering/Resolving]
  - Sinoatrial block [Recovering/Resolving]
  - Chest discomfort [Unknown]
  - Refraction disorder [Unknown]
  - Electrocardiogram RR interval prolonged [Unknown]
  - Dizziness [Unknown]
  - Off label use [Unknown]

NARRATIVE: CASE EVENT DATE: 20250412
